FAERS Safety Report 6154516-0 (Version None)
Quarter: 2009Q2

REPORT INFORMATION
  Report Type: 
  Country: None (occurrence: None)
  Receive Date: 20090410
  Receipt Date: 20090410
  Transmission Date: 20091009
  Serious: Yes (Hospitalization)
  Sender: FDA-Public Use
  Company Number: None

PATIENT
  Age: 57 Year
  Sex: Male
  Weight: 94 kg

DRUGS (3)
  1. VANCOMYCIN HCL [Suspect]
     Indication: PNEUMONIA
     Dosage: 1500 MG EVERY DAY IV
     Route: 042
     Dates: start: 20090121, end: 20090130
  2. VANCOMYCIN HCL [Suspect]
     Indication: STAPHYLOCOCCAL INFECTION
     Dosage: 1500 MG EVERY DAY IV
     Route: 042
     Dates: start: 20090121, end: 20090130
  3. VANCOMYCIN HCL [Suspect]
     Indication: URINARY TRACT INFECTION
     Dosage: 1500 MG EVERY DAY IV
     Route: 042
     Dates: start: 20090121, end: 20090130

REACTIONS (7)
  - AUTONOMIC NERVOUS SYSTEM IMBALANCE [None]
  - DIZZINESS [None]
  - EOSINOPHILIA [None]
  - HYPERSENSITIVITY [None]
  - HYPERTENSION [None]
  - HYPOTENSION [None]
  - TACHYCARDIA [None]
